FAERS Safety Report 24120536 (Version 5)
Quarter: 2025Q2

REPORT INFORMATION
  Report Type: Report from Study
  Country: US (occurrence: US)
  Receive Date: 20240722
  Receipt Date: 20250516
  Transmission Date: 20250717
  Serious: Yes (Other)
  Sender: AGIOS PHARMACEUTICALS
  Company Number: US-AGIOS-2407US03830

PATIENT
  Age: 62 Year
  Sex: Female

DRUGS (4)
  1. MITAPIVAT [Suspect]
     Active Substance: MITAPIVAT
     Indication: Pyruvate kinase deficiency anaemia
     Route: 065
     Dates: start: 20220414
  2. DEFERIPRONE [Concomitant]
     Active Substance: DEFERIPRONE
     Indication: Iron overload
     Route: 065
     Dates: start: 20240122
  3. VAGIFEM [Concomitant]
     Active Substance: ESTRADIOL
     Indication: Vulvovaginal dryness
     Route: 065
     Dates: start: 20240327
  4. RECLAST [Concomitant]
     Active Substance: ZOLEDRONIC ACID
     Indication: Osteoporosis

REACTIONS (9)
  - Loss of consciousness [Unknown]
  - Increased need for sleep [Not Recovered/Not Resolved]
  - Blood iron increased [Unknown]
  - Haemoglobin decreased [Unknown]
  - Quality of life decreased [Unknown]
  - Nasopharyngitis [Unknown]
  - Anaemia [Unknown]
  - Somnolence [Recovered/Resolved]
  - Insomnia [Recovered/Resolved]

NARRATIVE: CASE EVENT DATE: 20240301
